FAERS Safety Report 5626658-7 (Version None)
Quarter: 2008Q1

REPORT INFORMATION
  Report Type: 
  Country: None (occurrence: None)
  Receive Date: 20080214
  Receipt Date: 20080212
  Transmission Date: 20080703
  Serious: Yes (Hospitalization)
  Sender: FDA-Public Use
  Company Number: MX-BOEHRINGER INGELHEIM GMBH, GERMANY-2008-BP-02108MX

PATIENT
  Age: 26 Year
  Sex: Female

DRUGS (2)
  1. MICARDIS [Suspect]
     Indication: HYPERTENSION
     Route: 048
     Dates: start: 20080106, end: 20080209
  2. EPAMIN [Suspect]
     Indication: CONVULSION

REACTIONS (1)
  - DERMATITIS EXFOLIATIVE [None]
